FAERS Safety Report 7918760-1 (Version None)
Quarter: 2011Q4

REPORT INFORMATION
  Report Type: 
  Country: None (occurrence: None)
  Receive Date: 20111114
  Receipt Date: 20111031
  Transmission Date: 20120403
  Serious: Yes (Hospitalization)
  Sender: FDA-Public Use
  Company Number: CIP11000010

PATIENT
  Age: 63 Year
  Sex: Female

DRUGS (16)
  1. GEMFIBROZIL [Concomitant]
  2. PAROXETINE HCL [Concomitant]
  3. SYMBICORT [Concomitant]
  4. SPIRIVA [Concomitant]
  5. ACTONEL [Suspect]
     Indication: OSTEOPOROSIS PROPHYLAXIS
     Dosage: 35 MG, 1/WEEK, ORAL
     Route: 048
     Dates: start: 20050427, end: 20090201
  6. KLOR-CON [Concomitant]
  7. AMITRIPTYLINE HCL [Concomitant]
  8. ALBUTEROL [Concomitant]
  9. ASCORBIC ACID [Concomitant]
  10. LYRICA [Concomitant]
  11. FUROSEMIDE [Concomitant]
  12. ASPIRIN [Concomitant]
  13. FELODIPINE [Concomitant]
  14. PROTONIX [Concomitant]
  15. CALCIUM [Concomitant]
  16. LIPITOR [Concomitant]

REACTIONS (6)
  - ABASIA [None]
  - ARTHRALGIA [None]
  - PAIN IN EXTREMITY [None]
  - FEMUR FRACTURE [None]
  - BURSITIS [None]
  - STRESS FRACTURE [None]
